FAERS Safety Report 20805569 (Version 2)
Quarter: 2024Q1

REPORT INFORMATION
  Report Type: Spontaneous
  Country: ZA (occurrence: None)
  Receive Date: 20220510
  Receipt Date: 20240327
  Transmission Date: 20240409
  Serious: Yes (Hospitalization)
  Sender: FDA-Public Use
  Company Number: ZA-Unichem Pharmaceuticals (USA) Inc-UCM202205-000429

PATIENT
  Age: 28 Year
  Sex: Male

DRUGS (2)
  1. AMLODIPINE [Suspect]
     Active Substance: AMLODIPINE BESYLATE
     Indication: Product used for unknown indication
     Dosage: UNKNOWN
  2. RISPERIDONE [Suspect]
     Active Substance: RISPERIDONE
     Indication: Product used for unknown indication
     Dosage: UNKNOWN

REACTIONS (4)
  - Shock [Recovered/Resolved]
  - Haemodynamic instability [Recovered/Resolved]
  - Toxicity to various agents [Unknown]
  - Overdose [Unknown]
